FAERS Safety Report 9471045 (Version 1)
Quarter: 2013Q3

REPORT INFORMATION
  Report Type: Spontaneous
  Country: US (occurrence: US)
  Receive Date: 20130822
  Receipt Date: 20130822
  Transmission Date: 20140515
  Serious: No
  Sender: FDA-Public Use
  Company Number: US-PFIZER INC-2013242861

PATIENT
  Age: 70 Year
  Sex: Female
  Weight: 71.66 kg

DRUGS (3)
  1. LYRICA [Suspect]
     Indication: NEURALGIA
     Dosage: 75 MG, 2X/DAY
     Route: 048
     Dates: end: 20130817
  2. LIPITOR [Concomitant]
     Dosage: UNK
  3. NORVASC [Concomitant]
     Dosage: UNK

REACTIONS (2)
  - Off label use [Unknown]
  - Pain [Not Recovered/Not Resolved]
